FAERS Safety Report 19131527 (Version 3)
Quarter: 2021Q2

REPORT INFORMATION
  Report Type: Spontaneous
  Country: CA (occurrence: CA)
  Receive Date: 20210413
  Receipt Date: 20210525
  Transmission Date: 20210717
  Serious: Yes (Other)
  Sender: FDA-Public Use
  Company Number: CA-GLAXOSMITHKLINE-CA2018179383

PATIENT
  Age: 29 Year
  Sex: Female

DRUGS (3)
  1. LITHIUM. [Concomitant]
     Active Substance: LITHIUM
     Indication: BIPOLAR II DISORDER
     Dosage: 1200 MG, UNK
  2. QUETIAPINE FUMARATE. [Suspect]
     Active Substance: QUETIAPINE FUMARATE
     Indication: BIPOLAR II DISORDER
     Dosage: 25 MG, UNK
  3. LAMOTRIGINE. [Suspect]
     Active Substance: LAMOTRIGINE
     Indication: BIPOLAR II DISORDER
     Dosage: 125 MG, UNK

REACTIONS (2)
  - Obsessive-compulsive disorder [Recovered/Resolved]
  - Product use in unapproved indication [Unknown]
